FAERS Safety Report 7807869-9 (Version None)
Quarter: 2011Q4

REPORT INFORMATION
  Report Type: 
  Country: None (occurrence: None)
  Receive Date: 20111011
  Receipt Date: 20111006
  Transmission Date: 20120403
  Serious: Yes (Other)
  Sender: FDA-Public Use
  Company Number: US-CEPHALON-2011005267

PATIENT
  Sex: Male
  Weight: 117 kg

DRUGS (7)
  1. ACTOS [Concomitant]
     Dates: start: 20060101
  2. NUVIGIL [Suspect]
     Indication: SLEEP APNOEA SYNDROME
     Route: 048
     Dates: start: 20110930, end: 20111003
  3. LOTREL [Concomitant]
     Dates: start: 20010101
  4. ZOCOR [Concomitant]
     Dates: start: 20060101
  5. SYNTHROID [Concomitant]
     Dates: start: 19910101
  6. ZYLOPRIM [Concomitant]
     Dates: start: 20080101
  7. GLUCOVANCE [Concomitant]
     Dates: start: 19910101

REACTIONS (2)
  - SWOLLEN TONGUE [None]
  - DRY MOUTH [None]
